FAERS Safety Report 9456128 (Version 2)
Quarter: 2013Q3

REPORT INFORMATION
  Report Type: Report from Study
  Country: FR (occurrence: FR)
  Receive Date: 20130813
  Receipt Date: 20130920
  Transmission Date: 20140515
  Serious: Yes (Hospitalization)
  Sender: FDA-Public Use
  Company Number: FR-TEVA-425559USA

PATIENT
  Age: 71 Year
  Sex: Female

DRUGS (11)
  1. BENDAMUSTINE [Suspect]
     Indication: SPLENIC MARGINAL ZONE LYMPHOMA
     Dosage: UNKNOWN/D
     Route: 042
     Dates: start: 20130729
  2. BENDAMUSTINE [Suspect]
     Dosage: UNKNOWN/D
     Route: 042
     Dates: start: 20130826
  3. RITUXIMAB [Suspect]
     Indication: SPLENIC MARGINAL ZONE LYMPHOMA
     Dosage: UNKNOWN/D
     Route: 042
     Dates: start: 20130729
  4. VALACICLOVIR [Concomitant]
     Dates: start: 20130729
  5. ONDANSETRON [Concomitant]
     Dates: start: 20130729
  6. PARACETAMOL [Concomitant]
     Dates: start: 20130729
  7. DEXCHLORPHENIRAMINE [Concomitant]
     Dates: start: 20130729
  8. SULFAMETHOXAZOLE [Concomitant]
     Dates: start: 20130729
  9. HYDROCORTISONE [Concomitant]
     Dates: start: 20130729
  10. METOPIMAZINE [Concomitant]
     Dates: start: 20130729
  11. RASBURICASE [Concomitant]
     Dates: start: 20130729

REACTIONS (5)
  - Pancytopenia [Recovered/Resolved with Sequelae]
  - Neutropenia [Recovered/Resolved with Sequelae]
  - Leukopenia [Recovered/Resolved with Sequelae]
  - Anaemia [Recovered/Resolved with Sequelae]
  - Thrombocytopenia [Recovered/Resolved with Sequelae]
